FAERS Safety Report 16024307 (Version 2)
Quarter: 2019Q2

REPORT INFORMATION
  Report Type: Report from Study
  Country: US (occurrence: US)
  Receive Date: 20190301
  Receipt Date: 20190404
  Transmission Date: 20190711
  Serious: Yes (Death, Other)
  Sender: FDA-Public Use
  Company Number: US-REGENERON PHARMACEUTICALS, INC.-2019-19718

PATIENT

DRUGS (2)
  1. EYLEA [Suspect]
     Active Substance: AFLIBERCEPT
     Indication: RETINAL VEIN OCCLUSION
     Dosage: UNK
     Dates: start: 20150521, end: 20180810
  2. EYLEA [Suspect]
     Active Substance: AFLIBERCEPT
     Indication: MACULAR OEDEMA

REACTIONS (6)
  - Diabetes mellitus [Fatal]
  - Renal failure [Fatal]
  - Hypertension [Fatal]
  - Renal transplant [Unknown]
  - Anaemia [Fatal]
  - Hyperlipidaemia [Fatal]
